FAERS Safety Report 16237580 (Version 1)
Quarter: 2019Q2

REPORT INFORMATION
  Report Type: Spontaneous
  Country: US (occurrence: US)
  Receive Date: 20190424
  Receipt Date: 20190424
  Transmission Date: 20190711
  Serious: Yes (Life-Threatening)
  Sender: FDA-Public Use
  Company Number: None

PATIENT
  Age: 52 Year
  Sex: Female
  Weight: 108 kg

DRUGS (11)
  1. COQ10 [Concomitant]
     Active Substance: UBIDECARENONE
  2. LEVOFLOXACIN 500 MG TABLETS [Suspect]
     Active Substance: LEVOFLOXACIN
     Indication: BRONCHITIS
     Dosage: ?          QUANTITY:7 TABLET(S);?
     Route: 048
     Dates: start: 20190419, end: 20190424
  3. BUPROPION. [Concomitant]
     Active Substance: BUPROPION
  4. ZINC. [Concomitant]
     Active Substance: ZINC
  5. ELDERBERRY [Concomitant]
     Active Substance: HERBALS
  6. TRAMADOL. [Concomitant]
     Active Substance: TRAMADOL
  7. VITAMIN C [Concomitant]
     Active Substance: ASCORBIC ACID
  8. HYDROCHLOROTHIAZIDE. [Concomitant]
     Active Substance: HYDROCHLOROTHIAZIDE
  9. VITAMIN C [Concomitant]
     Active Substance: ASCORBIC ACID
  10. ESTRADOL [Concomitant]
  11. FENOFIBRATE. [Concomitant]
     Active Substance: FENOFIBRATE

REACTIONS (4)
  - Muscle spasms [None]
  - Tendonitis [None]
  - Insomnia [None]
  - Palpitations [None]

NARRATIVE: CASE EVENT DATE: 20190423
